FAERS Safety Report 8052461-7 (Version None)
Quarter: 2012Q1

REPORT INFORMATION
  Report Type: 
  Country: None (occurrence: None)
  Receive Date: 20120118
  Receipt Date: 20120116
  Transmission Date: 20120608
  Serious: Yes (Hospitalization)
  Sender: FDA-Public Use
  Company Number: IT-PFIZER INC-2012011785

PATIENT
  Age: 74 Year
  Sex: Male

DRUGS (8)
  1. ACETYLSALICYLIC ACID [Concomitant]
     Indication: CARDIOVASCULAR EVENT PROPHYLAXIS
     Dosage: 100 MG, UNK
     Route: 048
  2. TACHIDOL [Suspect]
     Indication: PAIN
     Dosage: 500MG/30MG, 1 DOSAGE UNIT, DAILY
     Route: 048
     Dates: start: 20100101, end: 20111114
  3. SPIRIVA [Concomitant]
     Indication: CHRONIC OBSTRUCTIVE PULMONARY DISEASE
     Dosage: 1 DOSAGE UNIT
     Route: 048
  4. METOCLOPRAMIDE HYDROCHLORIDE [Concomitant]
     Indication: VOMITING
     Dosage: 1 DOSAGE UNIT
     Route: 048
  5. DILTIAZEM HCL [Suspect]
     Indication: MYOCARDIAL ISCHAEMIA
     Dosage: 240 MG, 1X/DAY
     Route: 048
     Dates: start: 20010101, end: 20111114
  6. PANTOPRAZOLE [Suspect]
     Indication: PROPHYLAXIS AGAINST GASTROINTESTINAL ULCER
     Dosage: 20 MG, 1X/DAY
     Route: 048
     Dates: start: 20100101, end: 20111114
  7. IRINOTECAN HCL [Suspect]
     Indication: GASTRIC CANCER
     Dosage: 18.5 MG, TOTAL DOSE
     Route: 042
     Dates: start: 20111114, end: 20111114
  8. LYRICA [Suspect]
     Indication: NEURALGIA
     Dosage: 75 MG X2 (2 DOSAGE UNITS, DAILY)
     Route: 048
     Dates: start: 20100101, end: 20111114

REACTIONS (3)
  - DIARRHOEA [None]
  - LEUKOPENIA [None]
  - ERYTHROPENIA [None]
